FAERS Safety Report 7447778-0 (Version None)
Quarter: 2011Q2

REPORT INFORMATION
  Report Type: 
  Country: None (occurrence: None)
  Receive Date: 20110429
  Receipt Date: 20100823
  Transmission Date: 20111010
  Serious: No
  Sender: FDA-Public Use
  Company Number: US-ASTRAZENECA-2010SE39522

PATIENT
  Age: 51 Year
  Sex: Female

DRUGS (7)
  1. FLONASE [Concomitant]
  2. NYSTATIN [Concomitant]
  3. ALLERGY SHOTS [Concomitant]
  4. NEXIUM [Suspect]
     Indication: GASTROOESOPHAGEAL REFLUX DISEASE
     Route: 048
     Dates: start: 20000101
  5. ALLEGRA D 24 HOUR [Concomitant]
  6. NEXIUM [Suspect]
     Route: 048
     Dates: start: 20100809
  7. LEVOXYL [Concomitant]

REACTIONS (3)
  - GASTROOESOPHAGEAL REFLUX DISEASE [None]
  - GOITRE [None]
  - HORMONE LEVEL ABNORMAL [None]
